FAERS Safety Report 19641684 (Version 1)
Quarter: 2021Q3

REPORT INFORMATION
  Report Type: Spontaneous
  Country: US (occurrence: US)
  Receive Date: 20210731
  Receipt Date: 20210731
  Transmission Date: 20211014
  Serious: No
  Sender: FDA-Public Use
  Company Number: NVSC2021US167011

PATIENT
  Sex: Female

DRUGS (1)
  1. PROMACTA [Suspect]
     Active Substance: ELTROMBOPAG OLAMINE
     Indication: IMMUNE THROMBOCYTOPENIA
     Dosage: 50 MG, QD (STOP DATE: STOPPED FOR 1 MONTH)
     Route: 048
     Dates: start: 202104

REACTIONS (4)
  - Platelet count increased [Unknown]
  - Alopecia [Unknown]
  - Palpitations [Unknown]
  - Chest pain [Unknown]
